FAERS Safety Report 5884868-8 (Version None)
Quarter: 2008Q3

REPORT INFORMATION
  Report Type: 
  Country: None (occurrence: None)
  Receive Date: 20080916
  Receipt Date: 20080718
  Transmission Date: 20090109
  Serious: No
  Sender: FDA-Public Use
  Company Number: US-BAYER-200829159NA

PATIENT
  Sex: Female

DRUGS (2)
  1. YAZ [Suspect]
     Indication: GENITAL HAEMORRHAGE
     Route: 048
  2. YAZ [Suspect]
     Route: 048

REACTIONS (2)
  - METRORRHAGIA [None]
  - NO ADVERSE EVENT [None]
